FAERS Safety Report 25157898 (Version 2)
Quarter: 2025Q2

REPORT INFORMATION
  Report Type: Report from Study
  Country: US (occurrence: US)
  Receive Date: 20250404
  Receipt Date: 20250416
  Transmission Date: 20250717
  Serious: Yes (Other)
  Sender: ABBVIE
  Company Number: US-ABBVIE-6161867

PATIENT
  Age: 63 Year
  Sex: Male

DRUGS (3)
  1. VYALEV [Suspect]
     Active Substance: FOSCARBIDOPA\FOSLEVODOPA
     Indication: Parkinson^s disease
     Route: 058
     Dates: start: 20250227, end: 20250305
  2. VYALEV [Suspect]
     Active Substance: FOSCARBIDOPA\FOSLEVODOPA
     Route: 058
     Dates: start: 20250206
  3. VYALEV [Suspect]
     Active Substance: FOSCARBIDOPA\FOSLEVODOPA
     Route: 058

REACTIONS (16)
  - Loss of consciousness [Recovering/Resolving]
  - Infusion site induration [Unknown]
  - Illness [Not Recovered/Not Resolved]
  - Feeling abnormal [Recovering/Resolving]
  - Infusion site urticaria [Unknown]
  - Movement disorder [Not Recovered/Not Resolved]
  - Liver disorder [Unknown]
  - Paraesthesia [Not Recovered/Not Resolved]
  - Hypoaesthesia [Not Recovered/Not Resolved]
  - Overdose [Recovering/Resolving]
  - Nervous system disorder [Recovering/Resolving]
  - Drug ineffective [Unknown]
  - Hypotension [Recovering/Resolving]
  - Renal disorder [Unknown]
  - Infusion site mass [Unknown]
  - Speech disorder [Recovered/Resolved]

NARRATIVE: CASE EVENT DATE: 20250101
